FAERS Safety Report 21377198 (Version 1)
Quarter: 2022Q3

REPORT INFORMATION
  Report Type: Spontaneous
  Country: GB (occurrence: GB)
  Receive Date: 20220926
  Receipt Date: 20220926
  Transmission Date: 20221027
  Serious: Yes (Other)
  Sender: FDA-Public Use
  Company Number: GB-MHRA-MED-202209201246110370-ZNJGC

PATIENT
  Age: 33 Year
  Sex: Female
  Weight: 130 kg

DRUGS (3)
  1. SULFASALAZINE [Suspect]
     Active Substance: SULFASALAZINE
  2. AZATHIOPRINE [Suspect]
     Active Substance: AZATHIOPRINE
  3. FOLIC ACID [Concomitant]
     Active Substance: FOLIC ACID
     Indication: Vitamin supplementation

REACTIONS (2)
  - Stillbirth [Unknown]
  - Hypoxia [Unknown]

NARRATIVE: CASE EVENT DATE: 20220520
